FAERS Safety Report 9708091 (Version 1)
Quarter: 2013Q4

REPORT INFORMATION
  Report Type: Spontaneous
  Country: US (occurrence: None)
  Receive Date: 20131122
  Receipt Date: 20131122
  Transmission Date: 20140711
  Serious: Yes (Hospitalization)
  Sender: FDA-Public Use
  Company Number: None

PATIENT
  Age: 63 Year
  Sex: Male
  Weight: 90.72 kg

DRUGS (2)
  1. RANEXA [Suspect]
     Indication: CHEST PAIN
     Dosage: 2 TWICE DAILY TAKEN BY MOUTH
     Route: 048
     Dates: start: 20130401, end: 20131121
  2. RANEXA [Suspect]
     Dosage: 2 TWICE DAILY TAKEN BY MOUTH
     Route: 048
     Dates: start: 20130401, end: 20131121

REACTIONS (11)
  - Palpitations [None]
  - Joint swelling [None]
  - Local swelling [None]
  - Headache [None]
  - Dizziness [None]
  - Chromaturia [None]
  - Dyspnoea [None]
  - Dysuria [None]
  - Urine odour abnormal [None]
  - Fall [None]
  - Chest pain [None]
